FAERS Safety Report 10188294 (Version 2)
Quarter: 2014Q2

REPORT INFORMATION
  Report Type: Spontaneous
  Country: GB (occurrence: GB)
  Receive Date: 20140522
  Receipt Date: 20140613
  Transmission Date: 20141212
  Serious: Yes (Disabling)
  Sender: FDA-Public Use
  Company Number: GB-TEVA-481418ISR

PATIENT
  Age: 71 Year
  Sex: Female

DRUGS (12)
  1. ALENDRONIC ACID [Suspect]
     Route: 048
  2. CALCICHEW D3 [Concomitant]
  3. CITALOPRAM [Concomitant]
  4. CLOPIDOGREL [Concomitant]
  5. FOLIC ACID [Concomitant]
  6. GABAPENTIN [Concomitant]
  7. METHOTREXATE [Concomitant]
  8. PREDNISOLONE [Concomitant]
  9. SERETIDE [Concomitant]
  10. VENTOLIN [Concomitant]
  11. SALBUTAMOL [Concomitant]
  12. SPIRIVA [Concomitant]

REACTIONS (4)
  - Atypical femur fracture [Recovering/Resolving]
  - Pain in extremity [Recovered/Resolved]
  - Groin pain [Recovered/Resolved]
  - Psoriatic arthropathy [Unknown]
